FAERS Safety Report 13232128 (Version 1)
Quarter: 2017Q1

REPORT INFORMATION
  Report Type: Spontaneous
  Country: GB (occurrence: GB)
  Receive Date: 20170214
  Receipt Date: 20170214
  Transmission Date: 20170428
  Serious: Yes (Other)
  Sender: FDA-Public Use
  Company Number: GB-MYLANLABS-2017M1009249

PATIENT

DRUGS (8)
  1. CLARITHROMYCIN. [Concomitant]
     Active Substance: CLARITHROMYCIN
     Indication: ANTIBIOTIC THERAPY
     Dosage: 1 DF, BID
     Dates: start: 20170131
  2. HYDROXOCOBALAMIN [Concomitant]
     Active Substance: HYDROXOCOBALAMIN
     Dosage: USE AS DIRECTED.
     Dates: start: 20161213, end: 20170110
  3. MEDROXYPROGESTERONE ACETATE. [Concomitant]
     Active Substance: MEDROXYPROGESTERONE ACETATE
     Dosage: USE AS DIRECTED.
     Dates: start: 20161213, end: 20170110
  4. PREDNISOLONE. [Concomitant]
     Active Substance: PREDNISOLONE
     Dosage: IN THE MORNING.
     Dates: start: 20170131
  5. DOXYCYCLINE. [Suspect]
     Active Substance: DOXYCYCLINE
     Dosage: UNK
     Route: 048
     Dates: start: 20170130, end: 20170131
  6. SERTRALINE [Concomitant]
     Active Substance: SERTRALINE HYDROCHLORIDE
     Indication: DEPRESSED MOOD
     Dosage: IN THE MORNING.
     Dates: start: 20160710
  7. AMOXICILLIN. [Concomitant]
     Active Substance: AMOXICILLIN
     Indication: ANTIBIOTIC THERAPY
     Dosage: 1 DF, TID
     Dates: start: 20161222, end: 20161229
  8. SUMATRIPTAN. [Concomitant]
     Active Substance: SUMATRIPTAN
     Dosage: AS SOON AS POSSIBLE FOR AN ACUTE ATTAC
     Dates: start: 20160710

REACTIONS (3)
  - Vomiting [Unknown]
  - Epistaxis [Unknown]
  - Urticaria [Recovering/Resolving]

NARRATIVE: CASE EVENT DATE: 20170131
